FAERS Safety Report 25317774 (Version 1)
Quarter: 2025Q2

REPORT INFORMATION
  Report Type: Spontaneous
  Country: DE (occurrence: DE)
  Receive Date: 20250515
  Receipt Date: 20250515
  Transmission Date: 20250717
  Serious: Yes (Disabling, Congenital Anomaly)
  Sender: TEVA
  Company Number: DE-EMB-M202012423-1

PATIENT
  Sex: Male
  Weight: 3.7 kg

DRUGS (6)
  1. LEVETIRACETAM [Suspect]
     Active Substance: LEVETIRACETAM
     Indication: Epilepsy
     Route: 064
     Dates: start: 202008, end: 202008
  2. LEVETIRACETAM [Suspect]
     Active Substance: LEVETIRACETAM
     Indication: Epilepsy
     Route: 064
     Dates: start: 202008, end: 202011
  3. LEVETIRACETAM [Suspect]
     Active Substance: LEVETIRACETAM
     Indication: Epilepsy
     Dosage: INITIAL 3000MG DAILY (1500-0-1500), DOSAGE INCREASED TO MAX 4000MG DAILY (2000-0-2000);
     Route: 064
     Dates: start: 202002, end: 202008
  4. VIMPAT [Suspect]
     Active Substance: LACOSAMIDE
     Indication: Epilepsy
     Route: 064
     Dates: start: 202009, end: 202009
  5. VIMPAT [Suspect]
     Active Substance: LACOSAMIDE
     Indication: Epilepsy
     Dosage: INITIAL 200MG DAILY (100-0-100), DOSAGE GRADUALLY INCREASED TO 300MG DAILY (150-0-150)
     Route: 064
     Dates: start: 202002, end: 202009
  6. VIMPAT [Suspect]
     Active Substance: LACOSAMIDE
     Indication: Epilepsy
     Route: 064
     Dates: start: 202009, end: 202011

REACTIONS (2)
  - Cataract congenital [Recovered/Resolved with Sequelae]
  - Foetal exposure during pregnancy [Unknown]
